FAERS Safety Report 8916963 (Version 1)
Quarter: 2012Q4

REPORT INFORMATION
  Report Type: 
  Country: US (occurrence: US)
  Receive Date: 20121120
  Receipt Date: 20121120
  Transmission Date: 20130627
  Serious: No
  Sender: FDA-Public Use
  Company Number: US-009507513-1211USA005638

PATIENT
  Age: 43 Year
  Sex: Female
  Weight: 77.98 kg

DRUGS (4)
  1. NUVARING [Suspect]
     Indication: CONTRACEPTION
     Dosage: 1 ring for 3 weeks followed by a ring free break
     Route: 067
     Dates: start: 201005
  2. IBUPROFEN [Concomitant]
     Dosage: UNK, prn
  3. TYLENOL [Concomitant]
  4. IRON (UNSPECIFIED) (+) VITAMINS (UNSPECIFIED) [Concomitant]

REACTIONS (1)
  - Metrorrhagia [Unknown]
